FAERS Safety Report 4707833-2 (Version None)
Quarter: 2005Q3

REPORT INFORMATION
  Report Type: 
  Country: None (occurrence: None)
  Receive Date: 20050705
  Receipt Date: 20050705
  Transmission Date: 20060218
  Serious: Yes (Hospitalization)
  Sender: FDA-Public Use
  Company Number: None

PATIENT
  Age: 51 Year
  Sex: Male

DRUGS (3)
  1. VISIPAQUE 320 [Suspect]
     Indication: ANGIOGRAM
     Dosage: 320 MG    INTRAVENOU
     Route: 042
     Dates: start: 20050524, end: 20050524
  2. NORVASC [Concomitant]
  3. AVALIDE [Concomitant]

REACTIONS (3)
  - BLOOD PRESSURE DECREASED [None]
  - RASH [None]
  - URTICARIA [None]
